FAERS Safety Report 6668686-9 (Version None)
Quarter: 2010Q2

REPORT INFORMATION
  Report Type: 
  Country: None (occurrence: None)
  Receive Date: 20100406
  Receipt Date: 20100325
  Transmission Date: 20101027
  Serious: Yes (Hospitalization)
  Sender: FDA-Public Use
  Company Number: PHHY2010US17787

PATIENT
  Sex: Male
  Weight: 77.3 kg

DRUGS (11)
  1. EXJADE [Suspect]
     Indication: IRON OVERLOAD
     Dosage: 2500 MG, QD
     Route: 048
     Dates: start: 20070601
  2. EXJADE [Suspect]
     Dosage: 500 MG, QD
     Dates: start: 20090510
  3. EXJADE [Suspect]
     Dosage: 2500 MG, QD
     Route: 048
     Dates: end: 20100225
  4. FLOMAX [Concomitant]
     Dosage: 0.4 MG, QHS
  5. FOSAMAX [Concomitant]
     Dosage: 70 MG, QW
  6. SYNTHROID [Concomitant]
     Dosage: 0.088 MG, QD
  7. FOLIC ACID [Concomitant]
     Dosage: UNK
  8. VITAMIN B-12 [Concomitant]
     Dosage: UNK
  9. VITAMIN C [Concomitant]
     Dosage: UNK
  10. OS-CAL + D [Concomitant]
     Dosage: 1 DF, QD
     Route: 048
  11. MULTI-VITAMINS [Concomitant]
     Dosage: UNK

REACTIONS (6)
  - BLOOD CREATININE INCREASED [None]
  - BLOOD UREA INCREASED [None]
  - KIDNEY INFECTION [None]
  - OBSTRUCTIVE UROPATHY [None]
  - RENAL FAILURE ACUTE [None]
  - URINE OUTPUT DECREASED [None]
